FAERS Safety Report 5828823-2 (Version None)
Quarter: 2008Q3

REPORT INFORMATION
  Report Type: 
  Country: None (occurrence: None)
  Receive Date: 20080729
  Receipt Date: 20080729
  Transmission Date: 20090109
  Serious: Yes (Hospitalization)
  Sender: FDA-Public Use
  Company Number: None

PATIENT
  Age: 76 Year
  Sex: Male
  Weight: 99.18 kg

DRUGS (1)
  1. VINCRISTINE [Suspect]
     Dosage: 2 MG IV
     Route: 042
     Dates: start: 20071206, end: 20071206

REACTIONS (2)
  - AUTONOMIC NERVOUS SYSTEM IMBALANCE [None]
  - DIZZINESS POSTURAL [None]
